FAERS Safety Report 5764507-7 (Version None)
Quarter: 2008Q2

REPORT INFORMATION
  Report Type: 
  Country: None (occurrence: None)
  Receive Date: 20080610
  Receipt Date: 20080529
  Transmission Date: 20081010
  Serious: Yes (Other)
  Sender: FDA-Public Use
  Company Number: US-PFIZER INC-2008016123

PATIENT
  Sex: Female
  Weight: 66.2 kg

DRUGS (3)
  1. DEPO-PROVERA SUSPENSION/INJ [Suspect]
     Indication: CONTRACEPTION
     Route: 030
     Dates: start: 20060203, end: 20060203
  2. DEPO-PROVERA SUSPENSION/INJ [Suspect]
     Route: 030
     Dates: start: 20071206, end: 20071206
  3. DEPO-PROVERA SUSPENSION/INJ [Suspect]
     Route: 030
     Dates: start: 20080201, end: 20080201

REACTIONS (3)
  - CHOLECYSTECTOMY [None]
  - DRUG INEFFECTIVE [None]
  - UNINTENDED PREGNANCY [None]
